FAERS Safety Report 20436122 (Version 7)
Quarter: 2022Q4

REPORT INFORMATION
  Report Type: Report from Study
  Country: US (occurrence: US)
  Receive Date: 20220207
  Receipt Date: 20221028
  Transmission Date: 20230113
  Serious: Yes (Other)
  Sender: FDA-Public Use
  Company Number: US-NOVARTISPH-NVSC2022US025220

PATIENT
  Sex: Male

DRUGS (2)
  1. ENTRESTO [Suspect]
     Active Substance: SACUBITRIL\VALSARTAN
     Indication: Product used for unknown indication
     Dosage: UNK
     Route: 065
  2. ENTRESTO [Suspect]
     Active Substance: SACUBITRIL\VALSARTAN
     Dosage: 1 DOSAGE FORM
     Route: 048

REACTIONS (8)
  - Cardiomyopathy [Unknown]
  - Pain in extremity [Unknown]
  - Arthralgia [Unknown]
  - Weight increased [Unknown]
  - Dyspnoea [Unknown]
  - Fluid retention [Unknown]
  - Cardiomegaly [Unknown]
  - Diarrhoea [Unknown]
